FAERS Safety Report 5480361-5 (Version None)
Quarter: 2007Q4

REPORT INFORMATION
  Report Type: 
  Country: None (occurrence: None)
  Receive Date: 20071009
  Receipt Date: 20071003
  Transmission Date: 20080405
  Serious: Yes (Hospitalization)
  Sender: FDA-Public Use
  Company Number: CA-ASTRAZENECA-2007UW20195

PATIENT
  Age: 71 Year
  Sex: Male

DRUGS (7)
  1. CRESTOR [Suspect]
     Indication: HYPERCHOLESTEROLAEMIA
     Route: 048
     Dates: start: 20070101, end: 20070301
  2. CRESTOR [Suspect]
     Route: 048
     Dates: start: 20070301
  3. ADALAT [Concomitant]
     Indication: HYPERTENSION
     Route: 048
  4. ALTACE [Concomitant]
     Indication: HYPERTENSION
     Route: 048
  5. APO-HYDRO [Concomitant]
     Indication: DIURETIC THERAPY
     Route: 048
  6. MELOXICAM [Concomitant]
     Indication: PAIN
     Route: 048
  7. SYNTHROID [Concomitant]
     Indication: THYROID DISORDER
     Route: 048

REACTIONS (14)
  - ARTHRALGIA [None]
  - ASTHENIA [None]
  - BACK PAIN [None]
  - CEREBROVASCULAR ACCIDENT [None]
  - CONTUSION [None]
  - DIZZINESS [None]
  - ERYTHEMA [None]
  - FALL [None]
  - FLUSHING [None]
  - GAIT DISTURBANCE [None]
  - MUSCLE SPASMS [None]
  - MUSCULAR WEAKNESS [None]
  - MUSCULOSKELETAL DISCOMFORT [None]
  - MUSCULOSKELETAL PAIN [None]
